FAERS Safety Report 23883199 (Version 3)
Quarter: 2025Q1

REPORT INFORMATION
  Report Type: Report from Study
  Country: US (occurrence: US)
  Receive Date: 20240522
  Receipt Date: 20250213
  Transmission Date: 20250409
  Serious: Yes (Hospitalization)
  Sender: INSMED
  Company Number: US-INSMED, INC.-2024-01766-US

PATIENT
  Sex: Male

DRUGS (1)
  1. ARIKAYCE [Suspect]
     Active Substance: AMIKACIN
     Indication: Mycobacterial infection
     Dosage: 590 MILLIGRAM, QD
     Route: 055
     Dates: start: 202207, end: 20250204

REACTIONS (3)
  - Hospitalisation [Unknown]
  - Product storage error [Unknown]
  - Drug ineffective [Unknown]
